FAERS Safety Report 5722312-1 (Version None)
Quarter: 2008Q2

REPORT INFORMATION
  Report Type: 
  Country: None (occurrence: None)
  Receive Date: 20080429
  Receipt Date: 20070724
  Transmission Date: 20081010
  Serious: Yes (Hospitalization)
  Sender: FDA-Public Use
  Company Number: US-ASTRAZENECA-2007UW18011

PATIENT
  Age: 70 Year
  Sex: Male
  Weight: 99.8 kg

DRUGS (10)
  1. NEXIUM [Suspect]
     Indication: GASTROOESOPHAGEAL REFLUX DISEASE
     Route: 048
     Dates: start: 20050101
  2. WARFARIN SODIUM [Suspect]
     Indication: ATRIAL FIBRILLATION
     Dates: start: 20061101, end: 20070501
  3. BENICAR [Concomitant]
  4. ATENOLOL [Concomitant]
  5. DOXAZOSIN MESYLATE [Concomitant]
  6. MEFYLATE [Concomitant]
  7. LOVASTATIN [Concomitant]
  8. NECON [Concomitant]
  9. ASCORBIC ACID [Concomitant]
  10. SAW PALMETTO [Concomitant]

REACTIONS (3)
  - ASTHENIA [None]
  - GASTROINTESTINAL HAEMORRHAGE [None]
  - HAEMOGLOBIN DECREASED [None]
